FAERS Safety Report 8095098-6 (Version None)
Quarter: 2011Q4

REPORT INFORMATION
  Report Type: 
  Country: None (occurrence: None)
  Receive Date: 20111222
  Receipt Date: 20111102
  Transmission Date: 20120403
  Serious: Yes (Hospitalization)
  Sender: FDA-Public Use
  Company Number: UTC-011912

PATIENT
  Age: 61 Year
  Sex: Male
  Weight: 81.8 kg

DRUGS (3)
  1. DIURETICS (DIURETICS) [Concomitant]
  2. LETAIRIS [Concomitant]
  3. TYVASO [Suspect]
     Indication: COR PULMONALE CHRONIC
     Dosage: 144 MCG (36 MCG,4 IN 1 D),INHALATION
     Route: 055
     Dates: start: 20110729

REACTIONS (3)
  - EAR INJURY [None]
  - SYNCOPE [None]
  - EXCORIATION [None]
